FAERS Safety Report 20559274 (Version 4)
Quarter: 2022Q2

REPORT INFORMATION
  Report Type: Report from Study
  Country: US (occurrence: US)
  Receive Date: 20220307
  Receipt Date: 20220426
  Transmission Date: 20220721
  Serious: Yes (Other)
  Sender: FDA-Public Use
  Company Number: US-GLAXOSMITHKLINE-US2022020559

PATIENT
  Sex: Male

DRUGS (1)
  1. BELANTAMAB MAFODOTIN [Suspect]
     Active Substance: BELANTAMAB MAFODOTIN
     Indication: Product used for unknown indication
     Dosage: UNK
     Dates: start: 20220113

REACTIONS (9)
  - Corneal dystrophy [Not Recovered/Not Resolved]
  - Vision blurred [Unknown]
  - Ocular toxicity [Unknown]
  - Photophobia [Unknown]
  - Eye disorder [Unknown]
  - Night blindness [Not Recovered/Not Resolved]
  - Keratitis [Recovered/Resolved]
  - Visual acuity reduced [Recovering/Resolving]
  - Keratopathy [Not Recovered/Not Resolved]
